FAERS Safety Report 4821553-5 (Version None)
Quarter: 2005Q4

REPORT INFORMATION
  Report Type: 
  Country: None (occurrence: None)
  Receive Date: 20051103
  Receipt Date: 20051103
  Transmission Date: 20060501
  Serious: Yes (Other)
  Sender: FDA-Public Use
  Company Number: None

PATIENT
  Sex: Female
  Weight: 72.5755 kg

DRUGS (2)
  1. ZOCOR [Suspect]
     Indication: BLOOD CHOLESTEROL INCREASED
     Dosage: 20MG, QD, PO
     Route: 048
     Dates: start: 20050701, end: 20050901
  2. ZOCOR [Suspect]
     Indication: CORONARY ARTERY DISEASE
     Dosage: 20MG, QD, PO
     Route: 048
     Dates: start: 20050701, end: 20050901

REACTIONS (1)
  - MUSCLE SPASMS [None]
